FAERS Safety Report 10141365 (Version 1)
Quarter: 2014Q2

REPORT INFORMATION
  Report Type: Spontaneous
  Country: US (occurrence: US)
  Receive Date: 20140429
  Receipt Date: 20140429
  Transmission Date: 20141212
  Serious: Yes (Other)
  Sender: FDA-Public Use
  Company Number: CHPA2014US005728

PATIENT
  Age: 78 Year
  Sex: Female

DRUGS (3)
  1. VOLTAREN GEL [Suspect]
     Indication: HIP FRACTURE
     Dosage: A LITTLE DAB ONCE/TWICE DAILY
     Route: 061
     Dates: start: 201403
  2. VOLTAREN GEL [Suspect]
     Indication: OFF LABEL USE
  3. NORCO [Concomitant]
     Dosage: UNK
     Route: 065
     Dates: start: 201401

REACTIONS (5)
  - Thrombosis [Not Recovered/Not Resolved]
  - Peripheral swelling [Not Recovered/Not Resolved]
  - Pain in extremity [Not Recovered/Not Resolved]
  - Wrong technique in drug usage process [Unknown]
  - Drug administered at inappropriate site [Unknown]
